FAERS Safety Report 5170443-X (Version None)
Quarter: 2006Q4

REPORT INFORMATION
  Report Type: 
  Country: None (occurrence: None)
  Receive Date: 20061212
  Receipt Date: 20061205
  Transmission Date: 20070319
  Serious: Yes (Death)
  Sender: FDA-Public Use
  Company Number: CN-BOEHRINGER INGELHEIM GMBH, GERMANY-2006-DE-06480GD

PATIENT

DRUGS (3)
  1. ASPIRIN [Suspect]
     Indication: ANTIPLATELET THERAPY
  2. CILOSTAZOL [Suspect]
     Indication: ANTIPLATELET THERAPY
  3. CLOPIDOGREL [Suspect]
     Indication: ANTIPLATELET THERAPY

REACTIONS (5)
  - CARDIAC DISORDER [None]
  - DEATH [None]
  - HAEMORRHAGE [None]
  - MYOCARDIAL INFARCTION [None]
  - THROMBOSIS IN DEVICE [None]
